FAERS Safety Report 5818418-9 (Version None)
Quarter: 2008Q3

REPORT INFORMATION
  Report Type: 
  Country: None (occurrence: None)
  Receive Date: 20080716
  Receipt Date: 20080701
  Transmission Date: 20090109
  Serious: Yes (Hospitalization)
  Sender: FDA-Public Use
  Company Number: 2008S1011565

PATIENT
  Age: 64 Year
  Sex: Male

DRUGS (9)
  1. ATENOLOL [Suspect]
     Indication: DRUG USE FOR UNKNOWN INDICATION
  2. METHOTREXATE [Suspect]
     Indication: DRUG USE FOR UNKNOWN INDICATION
  3. PREDNISONE [Suspect]
     Indication: DRUG USE FOR UNKNOWN INDICATION
  4. CO-PROXAMOL /00016701/ (DI-GESIC /00016701/) [Concomitant]
     Indication: DRUG USE FOR UNKNOWN INDICATION
  5. ENBREL [Suspect]
     Indication: RHEUMATOID ARTHRITIS
     Dosage: 25 MG;
     Dates: start: 20060323
  6. VIOXX [Suspect]
     Indication: DRUG USE FOR UNKNOWN INDICATION
  7. CALCIUM (CON.) [Concomitant]
  8. GLICLAZIDE (CON.) [Concomitant]
  9. VITAMIND D /00107901/ (CON.) [Concomitant]

REACTIONS (2)
  - DIVERTICULUM [None]
  - ENTEROVESICAL FISTULA [None]
